FAERS Safety Report 14566174 (Version 5)
Quarter: 2019Q4

REPORT INFORMATION
  Report Type: Spontaneous
  Country: US (occurrence: US)
  Receive Date: 20180223
  Receipt Date: 20191220
  Transmission Date: 20200122
  Serious: Yes (Other)
  Sender: FDA-Public Use
  Company Number: US-PFIZER INC-2018078331

PATIENT
  Age: 57 Year
  Sex: Female

DRUGS (2)
  1. AMLODIPINE BESILATE [Suspect]
     Active Substance: AMLODIPINE BESYLATE
     Indication: HYPERTENSION
     Dosage: UNK
  2. AMLODIPINE BESILATE [Suspect]
     Active Substance: AMLODIPINE BESYLATE
     Dosage: 5 MG, DAILY
     Route: 048
     Dates: start: 2013

REACTIONS (12)
  - Headache [Unknown]
  - Rash [Unknown]
  - Pruritus [Unknown]
  - Migraine [Unknown]
  - Heart rate abnormal [Unknown]
  - Cough [Unknown]
  - Nausea [Unknown]
  - Loss of consciousness [Unknown]
  - Condition aggravated [Unknown]
  - Drug ineffective [Unknown]
  - Vomiting [Unknown]
  - Diarrhoea [Unknown]
